FAERS Safety Report 6382837-5 (Version None)
Quarter: 2009Q3

REPORT INFORMATION
  Report Type: 
  Country: None (occurrence: None)
  Receive Date: 20090928
  Receipt Date: 20090928
  Transmission Date: 20100115
  Serious: Yes (Life-Threatening)
  Sender: FDA-Public Use
  Company Number: None

PATIENT
  Age: 73 Year
  Sex: Female

DRUGS (8)
  1. APO-GO AMPOULES (APO-GO) (APOMORPHINE HYDROCHLORIDE) (APOMORPHINE HYDR [Suspect]
     Indication: PARKINSON'S DISEASE
     Dates: start: 20090625, end: 20090628
  2. DOMPERIDONE (DOMPERIDONE) [Concomitant]
  3. NYSTATIN [Concomitant]
  4. ENOXAPARIN SODIUM [Concomitant]
  5. STRONTIUM (STRONTIUM CHLORIDE) [Concomitant]
  6. MADOPAR (MADOPAR [Concomitant]
  7. SINEMET [Concomitant]
  8. DONEPEZIL (DONEPEZIL HYDROCHLORIDE) [Concomitant]

REACTIONS (6)
  - CONDITION AGGRAVATED [None]
  - PAIN [None]
  - PARKINSON'S DISEASE [None]
  - RESPIRATORY ARREST [None]
  - TREATMENT NONCOMPLIANCE [None]
  - URINARY TRACT INFECTION [None]
